FAERS Safety Report 7071533 (Version 2)
Quarter: 2013Q1

REPORT INFORMATION
  Report Type: Report from Study
  Country: JP (occurrence: JP)
  Receive Date: 20090804
  Receipt Date: 20130314
  Transmission Date: 20140127
  Serious: Yes (Other)
  Sender: FDA-Public Use
  Company Number: PHHY2009JP28447

PATIENT
  Age: 33 Year
  Sex: Male

DRUGS (2)
  1. AMN107 [Suspect]
     Indication: CHRONIC MYELOID LEUKAEMIA
     Dosage: 800 MG, DAILY
     Route: 048
     Dates: start: 20090620, end: 20111216
  2. AMN107 [Suspect]
     Dosage: 800 MG, DAILY
     Route: 048
     Dates: start: 20120106, end: 20120316

REACTIONS (8)
  - Alanine aminotransferase increased [Recovered/Resolved]
  - Aspartate aminotransferase increased [Recovered/Resolved]
  - Rash generalised [Recovered/Resolved]
  - Bilirubin conjugated increased [Recovering/Resolving]
  - Gamma-glutamyltransferase increased [Recovering/Resolving]
  - Weight increased [Recovering/Resolving]
  - Face oedema [Recovering/Resolving]
  - Electrocardiogram QT prolonged [Not Recovered/Not Resolved]
